FAERS Safety Report 24639884 (Version 4)
Quarter: 2024Q4

REPORT INFORMATION
  Report Type: Spontaneous
  Country: US (occurrence: US)
  Receive Date: 20241120
  Receipt Date: 20241217
  Transmission Date: 20250115
  Serious: Yes (Hospitalization)
  Sender: ROCHE
  Company Number: US-ROCHE-10000129891

PATIENT
  Sex: Female

DRUGS (5)
  1. HERCEPTIN [Suspect]
     Active Substance: TRASTUZUMAB
     Indication: Product used for unknown indication
     Route: 065
  2. TUKYSA [Suspect]
     Active Substance: TUCATINIB
     Indication: Product used for unknown indication
     Route: 065
     Dates: start: 20241024
  3. TUKYSA [Suspect]
     Active Substance: TUCATINIB
     Route: 065
  4. CAPECITABINE [Suspect]
     Active Substance: CAPECITABINE
     Indication: Product used for unknown indication
     Dosage: BY MOUTH TWICE DAILY FOR 14 DAYS, REPEAT EVERY?21 DAYS
     Route: 065
     Dates: start: 20241024
  5. KEFLEX [Concomitant]
     Active Substance: CEPHALEXIN

REACTIONS (6)
  - Haemorrhage [Unknown]
  - Peripheral swelling [Unknown]
  - Product dose omission issue [Unknown]
  - Diarrhoea [Recovering/Resolving]
  - Asthenia [Not Recovered/Not Resolved]
  - Glycogen storage disease type VI [Recovering/Resolving]
